FAERS Safety Report 5724820-6 (Version None)
Quarter: 2008Q2

REPORT INFORMATION
  Report Type: 
  Country: None (occurrence: None)
  Receive Date: 20080501
  Receipt Date: 20080428
  Transmission Date: 20081010
  Serious: Yes (Other)
  Sender: FDA-Public Use
  Company Number: US-TEVA-168305USA

PATIENT
  Age: 57 Year
  Sex: Male

DRUGS (4)
  1. ENALAPRIL MALEATE 2.5 MG, 5 MG, 10 MG + 20 MG TABLETS [Suspect]
     Indication: HYPERTENSION
     Route: 048
  2. TENORETIC 100 [Suspect]
  3. BUPROPION HCL [Concomitant]
  4. ALPRAZOLAM [Concomitant]
     Dosage: PRN

REACTIONS (6)
  - HYPERTENSION [None]
  - LOSS OF CONSCIOUSNESS [None]
  - MEDICATION ERROR [None]
  - RIB FRACTURE [None]
  - ROAD TRAFFIC ACCIDENT [None]
  - SKIN LACERATION [None]
